FAERS Safety Report 7444863-4 (Version None)
Quarter: 2011Q2

REPORT INFORMATION
  Report Type: 
  Country: None (occurrence: None)
  Receive Date: 20110426
  Receipt Date: 20110426
  Transmission Date: 20111010
  Serious: No
  Sender: FDA-Public Use
  Company Number: None

PATIENT
  Sex: Female
  Weight: 77.1115 kg

DRUGS (1)
  1. PREVACID [Suspect]
     Indication: ULCER
     Dosage: 30MG 1 TIME A DAY PO 7-10 YEARS
     Route: 048

REACTIONS (1)
  - OSTEOPOROSIS [None]
